FAERS Safety Report 20920320 (Version 1)
Quarter: 2022Q2

REPORT INFORMATION
  Report Type: Spontaneous
  Country: US (occurrence: None)
  Receive Date: 20220604
  Receipt Date: 20220604
  Transmission Date: 20220721
  Serious: Yes (Other)
  Sender: FDA-Public Use
  Company Number: None

PATIENT
  Age: 58 Year
  Sex: Female
  Weight: 90 kg

DRUGS (1)
  1. DEXTROAMPHET SACCHARAT, AMPHET ASPARTATE, DEXTROAMPHET SULFATE AND AMP [Suspect]
     Active Substance: AMPHETAMINE ASPARTATE\AMPHETAMINE SULFATE\DEXTROAMPHETAMINE SACCHARATE\DEXTROAMPHETAMINE SULFATE
     Indication: Attention deficit hyperactivity disorder
     Dosage: OTHER STRENGTH : 1;?FREQUENCY : TWICE A DAY;?
     Route: 048
     Dates: start: 20220602, end: 20220603

REACTIONS (7)
  - Dizziness [None]
  - Somnolence [None]
  - Feeling abnormal [None]
  - Product quality issue [None]
  - Lethargy [None]
  - Impaired work ability [None]
  - Product substitution issue [None]

NARRATIVE: CASE EVENT DATE: 20220603
